FAERS Safety Report 10747952 (Version 2)
Quarter: 2015Q2

REPORT INFORMATION
  Report Type: Spontaneous
  Country: BR (occurrence: BR)
  Receive Date: 20150129
  Receipt Date: 20150601
  Transmission Date: 20150821
  Serious: Yes (Other)
  Sender: FDA-Public Use
  Company Number: BR-JNJFOC-20150116225

PATIENT
  Age: 33 Year
  Sex: Female
  Weight: 76 kg

DRUGS (1)
  1. INFLIXIMAB, RECOMBINANT [Suspect]
     Active Substance: INFLIXIMAB
     Indication: PRODUCT USED FOR UNKNOWN INDICATION
     Route: 042
     Dates: start: 20121129, end: 20140724

REACTIONS (1)
  - Systemic lupus erythematosus [Unknown]

NARRATIVE: CASE EVENT DATE: 201404
